FAERS Safety Report 5585763-4 (Version None)
Quarter: 2007Q4

REPORT INFORMATION
  Report Type: 
  Country: None (occurrence: None)
  Receive Date: 20071204
  Receipt Date: 20071005
  Transmission Date: 20080405
  Serious: Yes (Other)
  Sender: FDA-Public Use
  Company Number: 07-0095

PATIENT
  Sex: Male

DRUGS (1)
  1. IBUPROFEN TABLETS [Suspect]
     Indication: MUSCULOSKELETAL PAIN
     Dosage: 800MG PO
     Route: 048

REACTIONS (1)
  - DRUG INEFFECTIVE [None]
